FAERS Safety Report 19316153 (Version 1)
Quarter: 2021Q2

REPORT INFORMATION
  Report Type: Spontaneous
  Country: ES (occurrence: ES)
  Receive Date: 20210527
  Receipt Date: 20210527
  Transmission Date: 20210717
  Serious: Yes (Other)
  Sender: FDA-Public Use
  Company Number: ES-TEVA-2021-ES-1915437

PATIENT
  Age: 62 Year
  Sex: Female
  Weight: 73 kg

DRUGS (8)
  1. CIPROFLOXACINO [Suspect]
     Active Substance: CIPROFLOXACIN HYDROCHLORIDE
     Route: 065
  2. VIBRACINA [Suspect]
     Active Substance: DOXYCYCLINE
     Route: 065
  3. CAPSAICINA [Suspect]
     Active Substance: CAPSAICIN
     Route: 065
  4. ECETROL [Concomitant]
  5. ATORVASTATINA [Suspect]
     Active Substance: ATORVASTATIN
     Route: 065
  6. CEFUROXIMA [CEFUROXIME] [Suspect]
     Active Substance: CEFUROXIME
     Route: 065
  7. ENANTYUM [Concomitant]
     Active Substance: DEXKETOPROFEN TROMETAMOL
  8. TETRACICLINAS [Suspect]
     Active Substance: TETRACYCLINE
     Route: 065

REACTIONS (7)
  - Rash pruritic [Unknown]
  - Paralysis [Unknown]
  - Rash [Unknown]
  - Headache [Unknown]
  - Tachycardia [Unknown]
  - Urticaria contact [Unknown]
  - Chest discomfort [Unknown]
